FAERS Safety Report 19583905 (Version 6)
Quarter: 2022Q1

REPORT INFORMATION
  Report Type: Report from Study
  Country: US (occurrence: US)
  Receive Date: 20210720
  Receipt Date: 20220103
  Transmission Date: 20220423
  Serious: Yes (Other)
  Sender: FDA-Public Use
  Company Number: US-NOVARTISPH-NVSC2021US147244

PATIENT
  Sex: Male

DRUGS (1)
  1. BEOVU [Suspect]
     Active Substance: BROLUCIZUMAB-DBLL
     Indication: Neovascular age-related macular degeneration
     Dosage: UNK
     Route: 047

REACTIONS (7)
  - Eye haemorrhage [Unknown]
  - Eye pruritus [Recovering/Resolving]
  - Metamorphopsia [Unknown]
  - Eye disorder [Unknown]
  - Vision blurred [Recovering/Resolving]
  - Lacrimation increased [Unknown]
  - Product use issue [Unknown]
